FAERS Safety Report 16385095 (Version 1)
Quarter: 2019Q2

REPORT INFORMATION
  Report Type: Spontaneous
  Country: DK (occurrence: DK)
  Receive Date: 20190603
  Receipt Date: 20190603
  Transmission Date: 20190711
  Serious: Yes (Hospitalization)
  Sender: FDA-Public Use
  Company Number: DK-ALLERGAN-1923198US

PATIENT
  Sex: Male

DRUGS (2)
  1. ASACOL [Suspect]
     Active Substance: MESALAMINE
     Indication: INFLAMMATORY BOWEL DISEASE
     Route: 065
  2. IMUREL [Suspect]
     Active Substance: AZATHIOPRINE SODIUM
     Indication: INFLAMMATORY BOWEL DISEASE
     Route: 065

REACTIONS (7)
  - Cough [Unknown]
  - Cytomegalovirus colitis [Recovering/Resolving]
  - Diarrhoea haemorrhagic [Unknown]
  - Alanine aminotransferase increased [Unknown]
  - Blood lactate dehydrogenase increased [Unknown]
  - Cytomegalovirus infection [Recovering/Resolving]
  - C-reactive protein increased [Unknown]
